FAERS Safety Report 25229610 (Version 1)
Quarter: 2025Q2

REPORT INFORMATION
  Report Type: Report from Study
  Country: US (occurrence: US)
  Receive Date: 20250423
  Receipt Date: 20250423
  Transmission Date: 20250716
  Serious: Yes (Other)
  Sender: GLAXOSMITHKLINE
  Company Number: US-GSK-US2025GSK048589

PATIENT

DRUGS (7)
  1. BELIMUMAB [Suspect]
     Active Substance: BELIMUMAB
     Indication: Systemic lupus erythematosus
     Dosage: UNK UNK, MO
     Route: 042
     Dates: start: 20240616, end: 20241207
  2. AZATHIOPRINE [Concomitant]
     Active Substance: AZATHIOPRINE
     Indication: Systemic lupus erythematosus
     Dosage: 50 MG, BID
     Route: 048
     Dates: start: 20241212
  3. CELLCEPT [Concomitant]
     Active Substance: MYCOPHENOLATE MOFETIL
     Indication: Systemic lupus erythematosus
     Dosage: 500 MG, BID
     Route: 048
     Dates: start: 20230115, end: 20241209
  4. IRON [Concomitant]
     Active Substance: IRON
     Indication: Anaemia
     Dosage: 45 MG, QD
     Route: 048
     Dates: start: 20241115
  5. LEVOTHYROXINE SODIUM [Concomitant]
     Active Substance: LEVOTHYROXINE SODIUM
     Indication: Autoimmune thyroiditis
     Dosage: 100 MG, QD
     Route: 048
     Dates: start: 20250125
  6. MAGNESIUM [Concomitant]
     Active Substance: MAGNESIUM
     Indication: Malnutrition
     Dosage: 500 MG, QD
     Route: 048
     Dates: start: 20241115
  7. HYDROXYCHLOROQUINE [Concomitant]
     Active Substance: HYDROXYCHLOROQUINE
     Indication: Systemic lupus erythematosus
     Dosage: 200 MG, QD
     Route: 048
     Dates: start: 20241115

REACTIONS (2)
  - Abortion spontaneous [Unknown]
  - Pyrexia [Recovered/Resolved]

NARRATIVE: CASE EVENT DATE: 20241230
